FAERS Safety Report 9920184 (Version 1)
Quarter: 2014Q1

REPORT INFORMATION
  Report Type: Spontaneous
  Country: SG (occurrence: SG)
  Receive Date: 20140224
  Receipt Date: 20140224
  Transmission Date: 20141002
  Serious: Yes (Other)
  Sender: FDA-Public Use
  Company Number: ALCN2014SG001290

PATIENT
  Age: 12 Year
  Sex: Female

DRUGS (1)
  1. CYCLOPENTOLATE HCL [Suspect]
     Dosage: UNK DRP, UNK
     Route: 047

REACTIONS (1)
  - Grand mal convulsion [Unknown]
